FAERS Safety Report 4803471-1 (Version None)
Quarter: 2005Q4

REPORT INFORMATION
  Report Type: 
  Country: None (occurrence: None)
  Receive Date: 20051014
  Receipt Date: 20051006
  Transmission Date: 20060501
  Serious: Yes (Hospitalization)
  Sender: FDA-Public Use
  Company Number: 0104-2404

PATIENT
  Age: 72 Year
  Sex: Female

DRUGS (7)
  1. ADVICOR [Suspect]
     Indication: HIGH DENSITY LIPOPROTEIN DECREASED
     Dates: start: 20050705, end: 20050720
  2. MECLIZINE [Concomitant]
  3. MAVIK [Concomitant]
  4. ASPIRIN [Concomitant]
  5. SYNTHROID [Concomitant]
  6. FOLIC ACID [Concomitant]
  7. INSULIN [Concomitant]

REACTIONS (6)
  - BLOOD PRESSURE INCREASED [None]
  - DIZZINESS POSTURAL [None]
  - HEART RATE INCREASED [None]
  - NAUSEA [None]
  - VERTIGO POSITIONAL [None]
  - VOMITING [None]
